FAERS Safety Report 21632797 (Version 1)
Quarter: 2022Q4

REPORT INFORMATION
  Report Type: Report from Study
  Country: US (occurrence: US)
  Receive Date: 20221123
  Receipt Date: 20221123
  Transmission Date: 20230113
  Serious: Yes (Other)
  Sender: FDA-Public Use
  Company Number: US-MYLANLABS-2022M1127635

PATIENT

DRUGS (1)
  1. TOPIRAMATE [Suspect]
     Active Substance: TOPIRAMATE
     Indication: Neonatal seizure
     Dosage: UNK; MADE USING ORA-SWEET AND ORA-PLUS; SUSPENSION
     Route: 065

REACTIONS (2)
  - Feeding disorder [Unknown]
  - Off label use [Unknown]
